FAERS Safety Report 12876213 (Version 2)
Quarter: 2017Q1

REPORT INFORMATION
  Report Type: Spontaneous
  Country: US (occurrence: US)
  Receive Date: 20161024
  Receipt Date: 20170213
  Transmission Date: 20170428
  Serious: Yes (Other)
  Sender: FDA-Public Use
  Company Number: US-TEVA-706072ACC

PATIENT
  Age: 24 Year
  Sex: Female
  Weight: 61.74 kg

DRUGS (4)
  1. TYLENOL [Concomitant]
     Active Substance: ACETAMINOPHEN
  2. PARAGARD T 380A [Suspect]
     Active Substance: COPPER
     Indication: CONTRACEPTION
     Dates: start: 20160916, end: 20161006
  3. VANCOMYCIN [Concomitant]
     Active Substance: VANCOMYCIN
  4. CECLOR [Concomitant]
     Active Substance: CEFACLOR

REACTIONS (3)
  - Abdominal pain [Recovered/Resolved]
  - Muscle spasms [Unknown]
  - Device dislocation [Recovered/Resolved]

NARRATIVE: CASE EVENT DATE: 20161005
